FAERS Safety Report 11466638 (Version 2)
Quarter: 2015Q4

REPORT INFORMATION
  Report Type: Spontaneous
  Country: US (occurrence: US)
  Receive Date: 20150907
  Receipt Date: 20151001
  Transmission Date: 20160304
  Serious: No
  Sender: FDA-Public Use
  Company Number: US-PFIZER INC-2015282092

PATIENT
  Age: 74 Year
  Sex: Male
  Weight: 98 kg

DRUGS (3)
  1. TORISEL [Suspect]
     Active Substance: TEMSIROLIMUS
     Dosage: UNK
     Route: 042
     Dates: start: 201506
  2. TORISEL [Suspect]
     Active Substance: TEMSIROLIMUS
     Indication: RENAL CELL CARCINOMA
     Dosage: 25 MG, UNK, (INFUSE IT OVER ONE HOUR PERIOD)
     Route: 042
     Dates: start: 20150626, end: 20150814
  3. TORISEL [Suspect]
     Active Substance: TEMSIROLIMUS
     Dosage: 45 MG, UNK
     Route: 042

REACTIONS (19)
  - Nausea [Recovering/Resolving]
  - Decreased appetite [Recovering/Resolving]
  - Dysgeusia [Recovering/Resolving]
  - Weight decreased [Unknown]
  - Fatigue [Recovered/Resolved]
  - Blood creatinine increased [Recovered/Resolved]
  - Urinary tract infection [Recovered/Resolved]
  - Platelet count decreased [Recovering/Resolving]
  - Blood disorder [Unknown]
  - Oral mucosal eruption [Recovering/Resolving]
  - Rash [Recovering/Resolving]
  - Haemoglobin decreased [Recovering/Resolving]
  - Visual impairment [Unknown]
  - Dizziness [Recovering/Resolving]
  - Abdominal discomfort [Recovering/Resolving]
  - Blood glucose increased [Recovered/Resolved]
  - White blood cell count decreased [Recovering/Resolving]
  - Immune system disorder [Recovering/Resolving]
  - Lacrimation increased [Unknown]
